FAERS Safety Report 10219668 (Version 1)
Quarter: 2014Q2

REPORT INFORMATION
  Report Type: Spontaneous
  Country: DK (occurrence: DK)
  Receive Date: 20140605
  Receipt Date: 20140605
  Transmission Date: 20141212
  Serious: Yes (Hospitalization)
  Sender: FDA-Public Use
  Company Number: DK-ACTAVIS-2014-11787

PATIENT
  Sex: Female
  Weight: 60 kg

DRUGS (15)
  1. OXABENZ [Suspect]
     Indication: RESTLESSNESS
     Dosage: 7.5 MG, DAILY
     Route: 048
     Dates: start: 20130302
  2. PINEX [Suspect]
     Indication: PAIN
     Dosage: 1 G, QID;
     Route: 048
     Dates: start: 20130302
  3. SIMVASTATIN ACTAVIS [Suspect]
     Indication: CARDIOVASCULAR DISORDER
     Dosage: 40 MG, DAILY
     Route: 048
     Dates: start: 20120921
  4. ABILIFY [Suspect]
     Indication: SCHIZOPHRENIA
     Dosage: 10 MG, DAILY
     Route: 048
     Dates: start: 20130217, end: 20130317
  5. ELTROXIN [Suspect]
     Indication: MYXOEDEMA
     Dosage: 50 ?G, DAILY
     Route: 048
     Dates: start: 20120921
  6. CARDIOSTAD                         /00894001/ [Suspect]
     Indication: HYPERTENSION
     Dosage: 20 MG, DAILY
     Route: 048
     Dates: start: 20120925
  7. LACTULOSE [Suspect]
     Indication: CONSTIPATION
     Dosage: 10 ML, BID
     Route: 048
     Dates: start: 20130302
  8. HJERTEMAGNYL                       /00228701/ [Suspect]
     Indication: THROMBOSIS PROPHYLAXIS
     Dosage: 75 MG, DAILY
     Route: 048
     Dates: start: 20120921
  9. NITROFURANTOIN ^DAK^ [Suspect]
     Indication: PROPHYLAXIS URINARY TRACT INFECTION
     Dosage: 50 MG, DAILY
     Route: 048
     Dates: start: 20120921
  10. PENOMAX [Suspect]
     Indication: INFECTION
     Dosage: 400 MG, TID
     Route: 048
     Dates: start: 20130306, end: 20130309
  11. PERSANTIN [Suspect]
     Indication: THROMBOSIS PROPHYLAXIS
     Dosage: 200 MG, BID
     Route: 048
     Dates: start: 20120921
  12. PANTOPRAZOL NYCOMED [Suspect]
     Indication: GASTROOESOPHAGEAL REFLUX DISEASE
     Dosage: 40 MG, DAILY
     Route: 048
     Dates: start: 20130302
  13. SERENASE                           /00027401/ [Suspect]
     Indication: MENTAL DISORDER
     Dosage: 4 MG, TID
     Route: 048
     Dates: start: 20120921
  14. TRADOLAN [Concomitant]
     Indication: PAIN
     Dosage: 50 MG, TID; AS NECESSARY
     Route: 048
     Dates: start: 20130303
  15. IMOCLONE [Concomitant]
     Indication: INSOMNIA
     Dosage: 7.5 MG, PRN
     Route: 048
     Dates: start: 20120224

REACTIONS (4)
  - Cerebral thrombosis [Not Recovered/Not Resolved]
  - Constipation [Not Recovered/Not Resolved]
  - Strawberry tongue [Not Recovered/Not Resolved]
  - Pneumonia [Not Recovered/Not Resolved]
